FAERS Safety Report 8797145 (Version 2)
Quarter: 2015Q2

REPORT INFORMATION
  Report Type: Report from Study
  Country: US (occurrence: US)
  Receive Date: 20120919
  Receipt Date: 20150623
  Transmission Date: 20150821
  Serious: Yes (Death)
  Sender: FDA-Public Use
  Company Number: US-ROCHE-1125748

PATIENT
  Sex: Female

DRUGS (18)
  1. AVASTIN [Suspect]
     Active Substance: BEVACIZUMAB
     Indication: HEPATOBILIARY CANCER
  2. ATIVAN [Concomitant]
     Active Substance: LORAZEPAM
  3. OXYCODONE [Concomitant]
     Active Substance: OXYCODONE
     Dosage: PRN
     Route: 065
  4. GEMZAR [Concomitant]
     Active Substance: GEMCITABINE HYDROCHLORIDE
     Route: 065
     Dates: start: 20050801, end: 20051220
  5. PREVACID [Concomitant]
     Active Substance: LANSOPRAZOLE
  6. EMLA [Concomitant]
     Active Substance: LIDOCAINE\PRILOCAINE
     Route: 065
  7. MORPHINE [Concomitant]
     Active Substance: MORPHINE
  8. CELEBREX [Concomitant]
     Active Substance: CELECOXIB
     Route: 065
     Dates: start: 20051205
  9. ALDACTONE (UNITED STATES) [Concomitant]
     Route: 065
  10. DURAGESIC [Concomitant]
     Active Substance: FENTANYL
     Route: 065
  11. AVASTIN [Suspect]
     Active Substance: BEVACIZUMAB
     Indication: HEPATOCELLULAR CARCINOMA
     Route: 042
     Dates: start: 20051213
  12. LEVOTHROID [Concomitant]
     Active Substance: LEVOTHYROXINE SODIUM
  13. FOSAMAX [Concomitant]
     Active Substance: ALENDRONATE SODIUM
     Route: 065
  14. GEMCITABINE [Concomitant]
     Active Substance: GEMCITABINE\GEMCITABINE HYDROCHLORIDE
     Route: 042
     Dates: start: 20050801
  15. BENADRYL [Concomitant]
     Active Substance: DIPHENHYDRAMINE HYDROCHLORIDE
     Route: 065
  16. ZOFRAN [Concomitant]
     Active Substance: ONDANSETRON HYDROCHLORIDE
     Route: 065
  17. ARANESP [Concomitant]
     Active Substance: DARBEPOETIN ALFA
  18. LASIX [Concomitant]
     Active Substance: FUROSEMIDE
     Route: 065

REACTIONS (22)
  - Feeling abnormal [Unknown]
  - Dyspnoea [Unknown]
  - Abdominal distension [Unknown]
  - Decreased appetite [Unknown]
  - Cough [Unknown]
  - Stomatitis [Unknown]
  - Muscle twitching [Unknown]
  - Abdominal pain [Unknown]
  - Confusional state [Unknown]
  - Urine output decreased [Unknown]
  - Chest pain [Unknown]
  - Dizziness [Unknown]
  - Ammonia increased [Unknown]
  - Off label use [Unknown]
  - Death [Fatal]
  - Ascites [Unknown]
  - Nausea [Unknown]
  - Vomiting [Unknown]
  - Fatigue [Unknown]
  - Paracentesis [Unknown]
  - Peripheral swelling [Unknown]
  - Mental status changes [Unknown]
